FAERS Safety Report 10718932 (Version 3)
Quarter: 2015Q3

REPORT INFORMATION
  Report Type: Spontaneous
  Country: US (occurrence: US)
  Receive Date: 20150119
  Receipt Date: 20150722
  Transmission Date: 20151125
  Serious: No
  Sender: FDA-Public Use
  Company Number: US-UNITED THERAPEUTICS-UNT-2014-002733

PATIENT
  Sex: Male
  Weight: 30.84 kg

DRUGS (2)
  1. REMODULIN [Suspect]
     Active Substance: TREPROSTINIL
     Indication: PULMONARY ARTERIAL HYPERTENSION
     Dosage: 0.032 ?G/KG, CONTINUING
     Route: 041
     Dates: start: 20070626
  2. ADCIRCA [Concomitant]
     Active Substance: TADALAFIL
     Indication: PRODUCT USED FOR UNKNOWN INDICATION

REACTIONS (7)
  - Dyspnoea [Recovered/Resolved]
  - Chromaturia [Recovered/Resolved]
  - Oxygen consumption increased [Recovered/Resolved]
  - Drug dose omission [Recovered/Resolved]
  - Urine output decreased [Recovered/Resolved]
  - Infection [Recovering/Resolving]
  - Increased upper airway secretion [Recovered/Resolved]
